FAERS Safety Report 6770605-1 (Version None)
Quarter: 2010Q2

REPORT INFORMATION
  Report Type: 
  Country: None (occurrence: None)
  Receive Date: 20100615
  Receipt Date: 20100609
  Transmission Date: 20101027
  Serious: Yes (Death, Hospitalization, Other)
  Sender: FDA-Public Use
  Company Number: MX-ELI_LILLY_AND_COMPANY-MX201006000562

PATIENT
  Age: 39 Year
  Sex: Female
  Weight: 95 kg

DRUGS (2)
  1. XIGRIS [Suspect]
     Indication: ABDOMINAL SEPSIS
     Dosage: 30 MG, OTHER
     Route: 042
  2. ANTIBIOTICS [Concomitant]
     Dosage: UNK, UNKNOWN
     Route: 065

REACTIONS (2)
  - MULTI-ORGAN FAILURE [None]
  - OEDEMATOUS PANCREATITIS [None]
